FAERS Safety Report 25932794 (Version 4)
Quarter: 2025Q4

REPORT INFORMATION
  Report Type: Report from Study
  Country: EU (occurrence: EU)
  Receive Date: 20251017
  Receipt Date: 20251125
  Transmission Date: 20260118
  Serious: Yes (Hospitalization, Other)
  Sender: ABBVIE
  Company Number: EU-ABBVIE-6501876

PATIENT
  Age: 88 Year
  Sex: Male

DRUGS (4)
  1. FOSCARBIDOPA\FOSLEVODOPA [Suspect]
     Active Substance: FOSCARBIDOPA\FOSLEVODOPA
     Indication: Parkinson^s disease
     Dosage: LD: 1.20ML, CR: LOW: 0.23ML/H, BASE: 0.36ML/H, HIGH: 0.38ML/H, ED: 0.15ML?LAST ADMIN DATE: OCT 2025
     Route: 058
     Dates: start: 20251006
  2. FOSCARBIDOPA\FOSLEVODOPA [Suspect]
     Active Substance: FOSCARBIDOPA\FOSLEVODOPA
     Dosage: LD: 1.20ML, CR: LOW: 0.30ML/H, BASE: 0.40ML/H, HIGH: 0.45ML/H, ED: 0.15ML, ONSET AND CESSATION DA...
     Route: 058
  3. FOSCARBIDOPA\FOSLEVODOPA [Suspect]
     Active Substance: FOSCARBIDOPA\FOSLEVODOPA
     Dosage: LD: 1.20ML, CR: LOW: 0.35ML/H, BASE: 0.42ML/H, HIGH: 0.45ML/H, ED: 0.15ML, LAST ADMIN DATE: OCT 2025
     Route: 058
     Dates: start: 202510
  4. FOSCARBIDOPA\FOSLEVODOPA [Suspect]
     Active Substance: FOSCARBIDOPA\FOSLEVODOPA
     Dosage: LD: 1.20ML ?CR: LOW: 0.35ML/H ?BASE: 0.42ML/H ?HIGH: 0.45ML/H ?ED: 0.15ML
     Route: 058
     Dates: start: 20251006

REACTIONS (11)
  - Pyrexia [Recovered/Resolved]
  - Musculoskeletal stiffness [Recovered/Resolved]
  - On and off phenomenon [Unknown]
  - Tremor [Not Recovered/Not Resolved]
  - Dizziness [Recovered/Resolved]
  - Malaise [Recovered/Resolved]
  - Aphasia [Unknown]
  - Device difficult to use [Unknown]
  - Sepsis [Recovered/Resolved]
  - Urinary tract infection [Recovered/Resolved]
  - Resting tremor [Not Recovered/Not Resolved]

NARRATIVE: CASE EVENT DATE: 20250101
